FAERS Safety Report 24444007 (Version 1)
Quarter: 2024Q4

REPORT INFORMATION
  Report Type: Spontaneous
  Country: US (occurrence: None)
  Receive Date: 20241015
  Receipt Date: 20241015
  Transmission Date: 20250114
  Serious: Yes (Hospitalization)
  Sender: Public
  Company Number: None

PATIENT
  Age: 67 Year
  Sex: Male

DRUGS (1)
  1. POMALYST [Suspect]
     Active Substance: POMALIDOMIDE
     Indication: Plasma cell myeloma
     Dosage: FREQUENCY : DAILY;?
     Route: 048
     Dates: start: 20240620

REACTIONS (4)
  - Pneumonia legionella [None]
  - Inappropriate schedule of product administration [None]
  - Haemoglobin decreased [None]
  - Red blood cell transfusion [None]

NARRATIVE: CASE EVENT DATE: 20240903
